FAERS Safety Report 6023510-2 (Version None)
Quarter: 2008Q4

REPORT INFORMATION
  Report Type: 
  Country: None (occurrence: None)
  Receive Date: 20081230
  Receipt Date: 20081221
  Transmission Date: 20090506
  Serious: Yes (Hospitalization, Other)
  Sender: FDA-Public Use
  Company Number: PHHY2008BR33008

PATIENT
  Age: 25 Year
  Sex: Male

DRUGS (4)
  1. TOFRANIL [Suspect]
     Dosage: 1 TABLET
     Dates: start: 20081221
  2. CITALOPRAM HYDROBROMIDE [Suspect]
     Dosage: UNK
     Dates: start: 20081221
  3. ALPRAZOLAM [Suspect]
     Dosage: 23 TABLETS
     Dates: start: 20081221
  4. TRANYLCYPROMINE SULFATE [Suspect]
     Dosage: 2 TABS
     Dates: start: 20081221

REACTIONS (3)
  - SOMNOLENCE [None]
  - SUICIDE ATTEMPT [None]
  - VOMITING [None]
